FAERS Safety Report 5682236-5 (Version None)
Quarter: 2008Q1

REPORT INFORMATION
  Report Type: 
  Country: None (occurrence: None)
  Receive Date: 20080327
  Receipt Date: 20080327
  Transmission Date: 20080703
  Serious: Yes (Hospitalization)
  Sender: FDA-Public Use
  Company Number: None

PATIENT
  Age: 6 Month
  Sex: Female
  Weight: 4 kg

DRUGS (1)
  1. HEPARIN LOCK-FLUSH [Suspect]
     Indication: INDWELLING CATHETER MANAGEMENT
     Dosage: 3 CC QDAY IV BOLUS
     Route: 040
     Dates: start: 20080225, end: 20080313

REACTIONS (2)
  - ACINETOBACTER BACTERAEMIA [None]
  - PHARMACEUTICAL PRODUCT COMPLAINT [None]
